FAERS Safety Report 9527585 (Version 1)
Quarter: 2013Q1

REPORT INFORMATION
  Report Type: Spontaneous
  Country: US (occurrence: None)
  Receive Date: 20130311
  Receipt Date: 20130311
  Transmission Date: 20140127
  Serious: No
  Sender: FDA-Public Use
  Company Number: 1301USA005663

PATIENT
  Age: 85 Year
  Sex: Male

DRUGS (1)
  1. ZIOPTAN [Suspect]
     Indication: GLAUCOMA
     Dosage: 1 DROP IN EACH EYE OPHTHALMIC
     Route: 047
     Dates: start: 20121127, end: 20121129

REACTIONS (3)
  - Ocular discomfort [None]
  - Eye irritation [None]
  - Abnormal sensation in eye [None]
